FAERS Safety Report 6228143-0 (Version None)
Quarter: 2009Q2

REPORT INFORMATION
  Report Type: 
  Country: None (occurrence: None)
  Receive Date: 20090612
  Receipt Date: 20090605
  Transmission Date: 20091009
  Serious: Yes (Death)
  Sender: FDA-Public Use
  Company Number: AU-AVENTIS-200913044EU

PATIENT
  Age: 61 Year
  Sex: Female

DRUGS (5)
  1. FRUSEMIDE [Suspect]
     Route: 048
  2. METFORMIN HYDROCHLORIDE [Suspect]
     Route: 048
  3. GLICLAZIDE [Concomitant]
     Route: 048
  4. QUINAPRIL [Concomitant]
  5. CANDESARTAN W/HYDROCHLOROTHIAZIDE [Concomitant]

REACTIONS (4)
  - HYPOGLYCAEMIA [None]
  - LACTIC ACIDOSIS [None]
  - RENAL FAILURE ACUTE [None]
  - SHOCK [None]
